FAERS Safety Report 7534878-X (Version None)
Quarter: 2011Q2

REPORT INFORMATION
  Report Type: 
  Country: None (occurrence: None)
  Receive Date: 20110609
  Receipt Date: 20081030
  Transmission Date: 20111010
  Serious: Yes (Other)
  Sender: FDA-Public Use
  Company Number: PHHY2008DE26718

PATIENT
  Sex: Male
  Weight: 75 kg

DRUGS (2)
  1. EXJADE [Suspect]
     Indication: HAEMOSIDEROSIS
     Dosage: 20 MG/KG, QD
     Route: 048
     Dates: start: 20071203, end: 20080226
  2. EXJADE [Suspect]
     Indication: MYELODYSPLASTIC SYNDROME
     Dosage: 30 MG/KG, UNK
     Route: 048
     Dates: start: 20080227, end: 20080910

REACTIONS (1)
  - ACUTE MYELOID LEUKAEMIA [None]
